FAERS Safety Report 11230498 (Version 1)
Quarter: 2015Q2

REPORT INFORMATION
  Report Type: Spontaneous
  Country: US (occurrence: None)
  Receive Date: 20150629
  Receipt Date: 20150629
  Transmission Date: 20150821
  Serious: No
  Sender: FDA-Public Use
  Company Number: None

PATIENT

DRUGS (2)
  1. OXYMORPHONE HCL OXYMORPHONE [Suspect]
     Active Substance: OXYMORPHONE
     Dosage: BOTTLE SIZE 100
     Route: 048
  2. OXYCODONE HCL [Suspect]
     Active Substance: OXYCODONE HYDROCHLORIDE
     Dosage: BOTTLE, SIZE 100
     Route: 048

REACTIONS (4)
  - Product dosage form confusion [None]
  - Product label confusion [None]
  - Circumstance or information capable of leading to medication error [None]
  - Product name confusion [None]
